FAERS Safety Report 7193086-5 (Version None)
Quarter: 2010Q4

REPORT INFORMATION
  Report Type: 
  Country: None (occurrence: None)
  Receive Date: 20101213
  Receipt Date: 20101129
  Transmission Date: 20110411
  Serious: Yes (Other)
  Sender: FDA-Public Use
  Company Number: 2010AP002482

PATIENT
  Age: 53 Year
  Sex: Male

DRUGS (3)
  1. ALLOPURINOL [Suspect]
     Dosage: 100 MG
  2. AZATHIOPRINE [Suspect]
     Indication: COLITIS ULCERATIVE
     Dosage: 300 MG; 50 MG
  3. PREDNISONE [Concomitant]

REACTIONS (2)
  - HERPES ZOSTER [None]
  - LYMPHOCYTE COUNT DECREASED [None]
